FAERS Safety Report 18952817 (Version 1)
Quarter: 2021Q1

REPORT INFORMATION
  Report Type: Spontaneous
  Country: IR (occurrence: IR)
  Receive Date: 20210301
  Receipt Date: 20210301
  Transmission Date: 20210420
  Serious: Yes (Hospitalization, Other)
  Sender: FDA-Public Use
  Company Number: IR-ROCHE-2775968

PATIENT
  Age: 35 Year
  Sex: Female
  Weight: 75 kg

DRUGS (2)
  1. RITUXAN [Suspect]
     Active Substance: RITUXIMAB
     Indication: MULTIPLE SCLEROSIS
     Route: 065
  2. TYSABRI [Suspect]
     Active Substance: NATALIZUMAB
     Indication: MULTIPLE SCLEROSIS
     Route: 042
     Dates: start: 2020, end: 20210129

REACTIONS (4)
  - Petechiae [Not Recovered/Not Resolved]
  - Treatment failure [Unknown]
  - Platelet count decreased [Not Recovered/Not Resolved]
  - Purpura [Unknown]

NARRATIVE: CASE EVENT DATE: 20210125
